FAERS Safety Report 6657392-2 (Version None)
Quarter: 2010Q1

REPORT INFORMATION
  Report Type: 
  Country: None (occurrence: None)
  Receive Date: 20100330
  Receipt Date: 20100323
  Transmission Date: 20100710
  Serious: Yes (Life-Threatening, Hospitalization, Other)
  Sender: FDA-Public Use
  Company Number: FR-JNJFOC-20100207634

PATIENT
  Age: 28 Year
  Sex: Male

DRUGS (2)
  1. REMICADE [Suspect]
     Indication: CROHN'S DISEASE
     Route: 042
  2. REMICADE [Suspect]
     Dosage: A TOTAL OF 40 INFUSIONS RECEIVED
     Route: 042

REACTIONS (2)
  - DRUG INEFFECTIVE [None]
  - HODGKIN'S DISEASE [None]
